FAERS Safety Report 15439278 (Version 2)
Quarter: 2019Q4

REPORT INFORMATION
  Report Type: Spontaneous
  Country: CA (occurrence: CA)
  Receive Date: 20180928
  Receipt Date: 20191221
  Transmission Date: 20200122
  Serious: Yes (Other)
  Sender: FDA-Public Use
  Company Number: CA-ROCHE-2190781

PATIENT
  Age: 52 Year
  Sex: Male

DRUGS (1)
  1. XOLAIR [Suspect]
     Active Substance: OMALIZUMAB
     Indication: ASTHMA
     Route: 058
     Dates: start: 20141210

REACTIONS (13)
  - Weight increased [Unknown]
  - Total lung capacity decreased [Unknown]
  - Feeling hot [Recovering/Resolving]
  - Dyspnoea [Unknown]
  - Obstructive airways disorder [Unknown]
  - Forced expiratory volume decreased [Not Recovered/Not Resolved]
  - Pulmonary congestion [Unknown]
  - Cough [Recovering/Resolving]
  - Chest pain [Unknown]
  - Middle insomnia [Unknown]
  - Asthma [Not Recovered/Not Resolved]
  - Sensitivity to weather change [Unknown]
  - Erythema [Recovering/Resolving]

NARRATIVE: CASE EVENT DATE: 20141210
